FAERS Safety Report 5860334-0 (Version None)
Quarter: 2008Q3

REPORT INFORMATION
  Report Type: 
  Country: None (occurrence: None)
  Receive Date: 20080827
  Receipt Date: 20080122
  Transmission Date: 20090109
  Serious: No
  Sender: FDA-Public Use
  Company Number: US-ABBOTT-07P-163-0376557-00

PATIENT
  Sex: Female
  Weight: 74.91 kg

DRUGS (12)
  1. NIASPAN [Suspect]
     Indication: LOW DENSITY LIPOPROTEIN
     Route: 048
     Dates: start: 20070727
  2. NIASPAN [Suspect]
     Route: 048
     Dates: start: 20040101, end: 20070726
  3. INSULIN ASPART [Suspect]
     Indication: DRUG USE FOR UNKNOWN INDICATION
  4. LANTUS [Suspect]
     Indication: DRUG USE FOR UNKNOWN INDICATION
  5. GLIMEPIRIDE [Concomitant]
     Indication: DIABETES MELLITUS
  6. PREMPROL [Concomitant]
     Indication: DRUG USE FOR UNKNOWN INDICATION
  7. ATORVASTATIN CALCIUM [Concomitant]
     Indication: DRUG USE FOR UNKNOWN INDICATION
  8. IMDUR [Concomitant]
     Indication: DRUG USE FOR UNKNOWN INDICATION
  9. METOPROLOL SUCCINATE [Concomitant]
     Indication: DRUG USE FOR UNKNOWN INDICATION
  10. VERAPAMIL HYDROCHLORIDE [Concomitant]
     Indication: DRUG USE FOR UNKNOWN INDICATION
  11. TELMISARTAN [Concomitant]
     Indication: DRUG USE FOR UNKNOWN INDICATION
  12. ACETYLSALICYLIC ACID SRT [Concomitant]
     Indication: PREMEDICATION

REACTIONS (3)
  - BLOOD GLUCOSE INCREASED [None]
  - LOW DENSITY LIPOPROTEIN DECREASED [None]
  - WEIGHT INCREASED [None]
